FAERS Safety Report 13524480 (Version 1)
Quarter: 2017Q2

REPORT INFORMATION
  Report Type: Spontaneous
  Country: US (occurrence: US)
  Receive Date: 20170508
  Receipt Date: 20170508
  Transmission Date: 20170830
  Serious: No
  Sender: FDA-Public Use
  Company Number: US-BAYER-2017-076270

PATIENT
  Age: 56 Year
  Sex: Female

DRUGS (5)
  1. ACARBOSE. [Suspect]
     Active Substance: ACARBOSE
     Dosage: UNK
  2. DIAZOXIDE [Concomitant]
     Active Substance: DIAZOXIDE
     Dosage: UNK
  3. SOMATOSTATIN [Concomitant]
     Active Substance: SOMATOSTATIN
     Dosage: UNK
  4. GLUCAGON. [Concomitant]
     Active Substance: GLUCAGON
     Dosage: UNK
  5. PREDNISONE. [Concomitant]
     Active Substance: PREDNISONE
     Dosage: UNK

REACTIONS (2)
  - Abdominal pain [None]
  - Off label use [None]
